FAERS Safety Report 6510447-5 (Version None)
Quarter: 2009Q4

REPORT INFORMATION
  Report Type: 
  Country: None (occurrence: None)
  Receive Date: 20091217
  Receipt Date: 20091207
  Transmission Date: 20100525
  Serious: No
  Sender: FDA-Public Use
  Company Number: 231778J09USA

PATIENT
  Age: 22 Year
  Sex: Male

DRUGS (1)
  1. REBIF [Suspect]
     Indication: MULTIPLE SCLEROSIS
     Dosage: 44 MCG, 3 IN 1 WEEKS, SUBCUTANEOUS
     Route: 058
     Dates: start: 20090903

REACTIONS (7)
  - DEAFNESS TRANSITORY [None]
  - FATIGUE [None]
  - HYPOAESTHESIA [None]
  - INFLUENZA [None]
  - MIGRAINE [None]
  - NYSTAGMUS [None]
  - VISION BLURRED [None]
